FAERS Safety Report 12070437 (Version 1)
Quarter: 2016Q1

REPORT INFORMATION
  Report Type: Spontaneous
  Country: US (occurrence: US)
  Receive Date: 20160211
  Receipt Date: 20160211
  Transmission Date: 20160526
  Serious: No
  Sender: FDA-Public Use
  Company Number: US-BAYER-2016-022695

PATIENT
  Age: 23 Year
  Sex: Male

DRUGS (7)
  1. AZACITIDINE. [Concomitant]
     Active Substance: AZACITIDINE
  2. CYTARABINE. [Concomitant]
     Active Substance: CYTARABINE
  3. FLUDARABINE [Concomitant]
     Active Substance: FLUDARABINE PHOSPHATE
  4. BUSULFAN [Concomitant]
     Active Substance: BUSULFAN
  5. SORAFENIB (RAF KINASE INHIBITOR) [Suspect]
     Active Substance: SORAFENIB
     Indication: ACUTE MYELOID LEUKAEMIA
  6. IDARUBICIN [Concomitant]
     Active Substance: IDARUBICIN
  7. DASATINIB [Concomitant]
     Active Substance: DASATINIB

REACTIONS (1)
  - Product use issue [None]
